FAERS Safety Report 5795564-X (Version None)
Quarter: 2008Q2

REPORT INFORMATION
  Report Type: 
  Country: None (occurrence: None)
  Receive Date: 20080630
  Receipt Date: 20080626
  Transmission Date: 20081010
  Serious: Yes (Death, Other)
  Sender: FDA-Public Use
  Company Number: PHEH2008US01188

PATIENT
  Sex: Male

DRUGS (9)
  1. EXJADE [Suspect]
     Indication: IRON OVERLOAD
     Dosage: 1500 MG, QD
     Route: 048
     Dates: start: 20071008, end: 20080123
  2. TOPROL-XL [Concomitant]
     Indication: CORONARY ARTERY DISEASE
     Dosage: 150 MG, QD
     Route: 048
     Dates: start: 20070105
  3. DIGOXIN [Concomitant]
     Indication: ATRIAL FIBRILLATION
     Dosage: 0.125 MG, QD
     Route: 048
     Dates: start: 20070105
  4. COUMADIN [Concomitant]
     Indication: ATRIAL FIBRILLATION
     Dosage: 2.5 MG, QD
     Dates: start: 20070105
  5. NORVASC [Concomitant]
     Indication: HYPERTENSION
     Dosage: 10 MG, QD
     Route: 048
     Dates: start: 20070105
  6. ZOCOR [Concomitant]
     Indication: BLOOD CHOLESTEROL
     Dosage: 20 MG, QD
     Route: 048
     Dates: start: 20070105
  7. DILTIAZEM HCL [Concomitant]
     Indication: ATRIAL FIBRILLATION
     Dosage: 120 MG, QD
     Route: 048
     Dates: start: 20070105
  8. METOPROLOL [Concomitant]
     Dosage: 50 MG, QD
  9. PREDNISONE [Concomitant]
     Dosage: 10 MG, QD

REACTIONS (19)
  - ANAEMIA [None]
  - CARDIAC DEATH [None]
  - CARDIAC FAILURE CONGESTIVE [None]
  - CARDIAC MURMUR [None]
  - CENTRAL VENOUS CATHETERISATION [None]
  - CONFUSIONAL STATE [None]
  - FALL [None]
  - HEART RATE IRREGULAR [None]
  - HIP FRACTURE [None]
  - HYPOTENSION [None]
  - MENTAL STATUS CHANGES [None]
  - OPEN REDUCTION OF FRACTURE [None]
  - POSTOPERATIVE FEVER [None]
  - PYREXIA [None]
  - SEPSIS [None]
  - SKIN LESION [None]
  - SOMNOLENCE [None]
  - SPLENOMEGALY [None]
  - WHITE BLOOD CELL COUNT DECREASED [None]
